FAERS Safety Report 7412900-9 (Version None)
Quarter: 2011Q2

REPORT INFORMATION
  Report Type: 
  Country: None (occurrence: None)
  Receive Date: 20110413
  Receipt Date: 20110324
  Transmission Date: 20111010
  Serious: Yes (Hospitalization)
  Sender: FDA-Public Use
  Company Number: US-BAYER-201034832NA

PATIENT
  Age: 35 Year
  Sex: Female
  Weight: 126.98 kg

DRUGS (10)
  1. YASMIN [Suspect]
     Indication: PRODUCT USED FOR UNKNOWN INDICATION
     Route: 048
  2. LUNESTA [Concomitant]
  3. YAZ [Suspect]
     Indication: PRODUCT USED FOR UNKNOWN INDICATION
  4. ACIPHEX [Concomitant]
  5. SERTRALINE [Concomitant]
  6. LEXAPRO [Concomitant]
  7. KETOROLAC [Concomitant]
  8. OCELLA [Suspect]
     Dosage: UNK
  9. AZITHROMYCIN [Concomitant]
  10. LASIX [Concomitant]

REACTIONS (2)
  - PULMONARY EMBOLISM [None]
  - INJURY [None]
